FAERS Safety Report 9242897 (Version 1)
Quarter: 2013Q2

REPORT INFORMATION
  Report Type: Spontaneous
  Country: AU (occurrence: AU)
  Receive Date: 20130419
  Receipt Date: 20130419
  Transmission Date: 20140414
  Serious: Yes (Death)
  Sender: FDA-Public Use
  Company Number: AU-ABBOTT-13P-008-1077430-00

PATIENT
  Sex: Male

DRUGS (1)
  1. LEUPROLIDE ACETATE DEPOT [Suspect]
     Indication: PRODUCT USED FOR UNKNOWN INDICATION
     Dates: start: 20110208

REACTIONS (1)
  - Death [Fatal]
